FAERS Safety Report 8619992-X (Version None)
Quarter: 2012Q3

REPORT INFORMATION
  Report Type: 
  Country: None (occurrence: None)
  Receive Date: 20120817
  Receipt Date: 20120817
  Transmission Date: 20120928
  Serious: Yes (Other)
  Sender: FDA-Public Use
  Company Number: None

PATIENT
  Age: 35 Year
  Sex: Male
  Weight: 81.6475 kg

DRUGS (1)
  1. ASPERCREAM MAX ARTHRITIS STRENGHTH CHATTEM INC. [Suspect]
     Indication: MYALGIA
     Dosage: ROLLED ON. SMALL AMOUNT, ONE APPLICATION
     Dates: start: 20120815, end: 20120815

REACTIONS (5)
  - APPLICATION SITE SWELLING [None]
  - IMPAIRED WORK ABILITY [None]
  - APPLICATION SITE PAIN [None]
  - APPLICATION SITE ERYTHEMA [None]
  - APPLICATION SITE IRRITATION [None]
